FAERS Safety Report 12769820 (Version 1)
Quarter: 2016Q3

REPORT INFORMATION
  Report Type: Spontaneous
  Country: FR (occurrence: FR)
  Receive Date: 20160922
  Receipt Date: 20160922
  Transmission Date: 20161109
  Serious: Yes (Other)
  Sender: FDA-Public Use
  Company Number: FR-SUN PHARMACEUTICAL INDUSTRIES LTD-2016RR-124453

PATIENT
  Age: 64 Year

DRUGS (5)
  1. 5-FLUOROURACIL [Suspect]
     Active Substance: FLUOROURACIL
     Indication: PANCREATIC NEUROENDOCRINE TUMOUR
     Dosage: 13 CYCLES
     Route: 065
  2. CALCIUM FOLINAT [Suspect]
     Active Substance: LEUCOVORIN CALCIUM
     Indication: PANCREATIC NEUROENDOCRINE TUMOUR
     Dosage: 13 CYCLES
     Route: 065
  3. IRINOTECAN [Suspect]
     Active Substance: IRINOTECAN
     Indication: PANCREATIC NEUROENDOCRINE TUMOUR
     Dosage: 13 CYCLES
     Route: 065
  4. CISPLATIN. [Suspect]
     Active Substance: CISPLATIN
     Indication: PANCREATIC NEUROENDOCRINE TUMOUR
     Dosage: 6 CYCLES
     Route: 065
  5. ETOPOSIDE. [Suspect]
     Active Substance: ETOPOSIDE
     Indication: PANCREATIC NEUROENDOCRINE TUMOUR
     Dosage: 6 CYCLES
     Route: 065

REACTIONS (2)
  - Drug effect incomplete [Unknown]
  - Neutropenia [Unknown]
